FAERS Safety Report 8260074-7 (Version None)
Quarter: 2012Q2

REPORT INFORMATION
  Report Type: 
  Country: None (occurrence: None)
  Receive Date: 20120404
  Receipt Date: 20120322
  Transmission Date: 20120825
  Serious: Yes (Other)
  Sender: FDA-Public Use
  Company Number: MX-MYLANLABS-2012S1006312

PATIENT
  Age: 8 Month
  Sex: Male

DRUGS (5)
  1. ZIDOVUDINE [Suspect]
     Indication: HIV INFECTION
     Route: 065
  2. KALETRA                            /01506501/ [Suspect]
     Indication: HIV INFECTION
     Route: 065
  3. TICE BCG [Suspect]
     Route: 065
  4. STAVUDINE [Suspect]
     Indication: HIV INFECTION
     Route: 065
  5. LAMIVUDINE [Suspect]
     Indication: HIV INFECTION
     Route: 065

REACTIONS (2)
  - IMMUNE RECONSTITUTION SYNDROME [None]
  - LYMPHADENOPATHY [None]
